FAERS Safety Report 8239813-7 (Version None)
Quarter: 2012Q1

REPORT INFORMATION
  Report Type: 
  Country: None (occurrence: None)
  Receive Date: 20120328
  Receipt Date: 20120321
  Transmission Date: 20120608
  Serious: Yes (Other)
  Sender: FDA-Public Use
  Company Number: JP-ASTELLAS-2012US003041

PATIENT
  Sex: Male
  Weight: 55 kg

DRUGS (12)
  1. LOPERAMIDE HCL [Concomitant]
     Indication: PRODUCT USED FOR UNKNOWN INDICATION
     Dosage: 1 MG, PRN
     Route: 048
  2. ERLOTINIB HYDROCHLORIDE [Suspect]
     Indication: PANCREATIC CARCINOMA
     Dosage: 100 MG, UID/QD
     Dates: start: 20110803, end: 20110831
  3. GEMCITABINE HYDROCHLORIDE [Concomitant]
     Dosage: 750 MG/M2, UID/QD
     Route: 041
     Dates: start: 20110824, end: 20110824
  4. PREDNISOLONE [Concomitant]
     Indication: PRODUCT USED FOR UNKNOWN INDICATION
     Dosage: 10 MG, UID/QD
     Route: 048
  5. GEMCITABINE HYDROCHLORIDE [Concomitant]
     Dosage: 750 MG/M2, UID/QD
     Route: 041
     Dates: start: 20110810, end: 20110810
  6. TOUGHMAC E [Concomitant]
     Indication: PRODUCT USED FOR UNKNOWN INDICATION
     Dosage: 3 DF, UID/QD
     Route: 048
  7. GEMCITABINE HYDROCHLORIDE [Concomitant]
     Indication: PANCREATIC CARCINOMA
     Dosage: 750 MG/M2, UID/QD
     Route: 041
     Dates: start: 20110803, end: 20110803
  8. ERLOTINIB HYDROCHLORIDE [Suspect]
     Dosage: 100 MG, UID/QD
     Dates: start: 20111005, end: 20111011
  9. MOBIC [Concomitant]
     Indication: PRODUCT USED FOR UNKNOWN INDICATION
     Dosage: 10 MG, UID/QD
     Route: 048
  10. GEMCITABINE HYDROCHLORIDE [Concomitant]
     Dosage: 750 MG/M2, UID/QD
     Route: 041
     Dates: start: 20111005, end: 20111005
  11. AMLODIPINE [Concomitant]
     Indication: PRODUCT USED FOR UNKNOWN INDICATION
     Dosage: 5 MG, UID/QD
     Route: 048
  12. MIYA BM [Concomitant]
     Indication: PRODUCT USED FOR UNKNOWN INDICATION
     Dosage: 3 G, UID/QD
     Route: 048

REACTIONS (2)
  - DISEASE PROGRESSION [None]
  - CHOLANGITIS [None]
